FAERS Safety Report 9313995 (Version 1)
Quarter: 2013Q2

REPORT INFORMATION
  Report Type: Spontaneous
  Country: US (occurrence: None)
  Receive Date: 20130524
  Receipt Date: 20130524
  Transmission Date: 20140414
  Serious: No
  Sender: FDA-Public Use
  Company Number: None

PATIENT
  Age: 45 Year
  Sex: Male
  Weight: 128.37 kg

DRUGS (1)
  1. STRATTERA [Suspect]
     Indication: ATTENTION DEFICIT/HYPERACTIVITY DISORDER
     Dates: start: 20130513, end: 20130611

REACTIONS (1)
  - Dyspareunia [None]
